FAERS Safety Report 4610536-6 (Version None)
Quarter: 2005Q2

REPORT INFORMATION
  Report Type: 
  Country: None (occurrence: None)
  Receive Date: 20050228
  Receipt Date: 20041124
  Transmission Date: 20051028
  Serious: Yes (Hospitalization)
  Sender: FDA-Public Use
  Company Number: 238815

PATIENT
  Age: 73 Year
  Sex: Female
  Weight: 77.5 kg

DRUGS (9)
  1. NOVOLIN 70/30 [Suspect]
     Indication: INSULIN-REQUIRING TYPE II DIABETES MELLITUS
     Dosage: 40 IU, SINGLE; SUBCUTANEOUS (SEE IMAGE)
     Route: 058
     Dates: start: 20040510, end: 20040510
  2. NOVOLIN 70/30 [Suspect]
     Indication: INSULIN-REQUIRING TYPE II DIABETES MELLITUS
     Dosage: 40 IU, SINGLE; SUBCUTANEOUS (SEE IMAGE)
     Route: 058
     Dates: start: 20040510, end: 20040512
  3. NOVOLIN 70/30 [Suspect]
     Indication: INSULIN-REQUIRING TYPE II DIABETES MELLITUS
     Dosage: 40 IU, SINGLE; SUBCUTANEOUS (SEE IMAGE)
     Route: 058
     Dates: start: 20040512, end: 20040512
  4. NOVOLOG MIX 70/30 [Suspect]
     Indication: INSULIN-REQUIRING TYPE II DIABETES MELLITUS
     Dosage: 55 IU,QD;SUBCUTANEOUS
     Route: 058
     Dates: start: 20040512
  5. ACTOS/USA/ (PIOGLITAZONE HYDROCHLORIDE) [Concomitant]
  6. ALTACE [Concomitant]
  7. BRETHINE [Concomitant]
  8. FLOVENT [Concomitant]
  9. NITROGLYCERIN ^A.L.^ (GLYCERYL TRINITRATE) [Concomitant]

REACTIONS (2)
  - BLOOD GLUCOSE FLUCTUATION [None]
  - MEDICATION ERROR [None]
